FAERS Safety Report 9238361 (Version 2)
Quarter: 2013Q2

REPORT INFORMATION
  Report Type: Spontaneous
  Country: JP (occurrence: JP)
  Receive Date: 20130418
  Receipt Date: 20130517
  Transmission Date: 20140414
  Serious: Yes (Hospitalization)
  Sender: FDA-Public Use
  Company Number: JP-COVIDIEN/TYCO HEALTHCARE/MALLINCKRODT-T201301656

PATIENT
  Age: 73 Year
  Sex: Male

DRUGS (1)
  1. OPTIRAY [Suspect]
     Indication: COMPUTERISED TOMOGRAM
     Dosage: 88 ML, SINGLE
     Route: 042
     Dates: start: 20130402, end: 20130402

REACTIONS (1)
  - Anaphylactic reaction [Recovered/Resolved]
